FAERS Safety Report 17363340 (Version 1)
Quarter: 2020Q1

REPORT INFORMATION
  Report Type: Spontaneous
  Country: US (occurrence: US)
  Receive Date: 20200203
  Receipt Date: 20200203
  Transmission Date: 20200409
  Serious: Yes (Hospitalization)
  Sender: FDA-Public Use
  Company Number: US-NOVOPROD-707053

PATIENT
  Age: 46 Year
  Sex: Female

DRUGS (6)
  1. MOTRIN [Concomitant]
     Active Substance: IBUPROFEN
     Indication: PELVIC PAIN
     Dosage: UNK
     Route: 048
  2. ACTIVELLA [Suspect]
     Active Substance: ESTRADIOL\NORETHINDRONE ACETATE
     Indication: UTERINE LEIOMYOMA
     Dosage: 1 TABLET DAILY
     Route: 048
     Dates: start: 20170713, end: 20171228
  3. ELAGOLIX [Suspect]
     Active Substance: ELAGOLIX
     Indication: UTERINE LEIOMYOMA
     Dosage: 600 MG, QD
     Route: 048
     Dates: start: 20170713, end: 20171228
  4. FERROUS GLUCONATE [Concomitant]
     Active Substance: FERROUS GLUCONATE
     Dosage: UNK
     Route: 048
     Dates: start: 20180707
  5. CENTRUM MULTIGUMMIES WOMEN [Concomitant]
     Active Substance: MINERALS\VITAMINS
     Indication: GENERAL PHYSICAL CONDITION
     Dosage: 1 TABLET DAILY
     Route: 048
     Dates: start: 20140101
  6. FERROUS GLUCONATE [Concomitant]
     Active Substance: FERROUS GLUCONATE
     Indication: ANAEMIA
     Dosage: 240 MG, QD
     Route: 048
     Dates: start: 20171003, end: 20180130

REACTIONS (3)
  - Anxiety [Recovered/Resolved]
  - Syncope [Recovered/Resolved]
  - Off label use [Recovered/Resolved]

NARRATIVE: CASE EVENT DATE: 20170713
